FAERS Safety Report 7478138-4 (Version None)
Quarter: 2011Q2

REPORT INFORMATION
  Report Type: 
  Country: None (occurrence: None)
  Receive Date: 20110513
  Receipt Date: 20110428
  Transmission Date: 20111010
  Serious: Yes (Other)
  Sender: FDA-Public Use
  Company Number: SE-JNJFOC-20110500352

PATIENT
  Sex: Male

DRUGS (1)
  1. ACETYL SALICYLIC ACID USP BAT [Suspect]
     Indication: THROMBOSIS PROPHYLAXIS
     Route: 048

REACTIONS (2)
  - PULMONARY EMBOLISM [None]
  - EXPIRED DRUG ADMINISTERED [None]
